FAERS Safety Report 15517905 (Version 1)
Quarter: 2018Q4

REPORT INFORMATION
  Report Type: Spontaneous
  Country: GB (occurrence: FR)
  Receive Date: 20181017
  Receipt Date: 20181017
  Transmission Date: 20190205
  Serious: Yes (Hospitalization)
  Sender: FDA-Public Use
  Company Number: FR-FRESENIUS KABI-FK201810632

PATIENT
  Age: 70 Year
  Sex: Female

DRUGS (2)
  1. CARBOPLATINE [Suspect]
     Active Substance: CARBOPLATIN
     Indication: OVARIAN CANCER METASTATIC
     Route: 042
     Dates: start: 20180331, end: 20180731
  2. PACLITAXEL (MANUFACTURER UNKNOWN) [Suspect]
     Active Substance: PACLITAXEL
     Indication: OVARIAN CANCER METASTATIC
     Route: 042
     Dates: start: 20180331, end: 20180731

REACTIONS (2)
  - Angiodermatitis [Recovered/Resolved with Sequelae]
  - Skin necrosis [Recovered/Resolved with Sequelae]

NARRATIVE: CASE EVENT DATE: 20180530
